FAERS Safety Report 9613821 (Version 1)
Quarter: 2013Q4

REPORT INFORMATION
  Report Type: Spontaneous
  Country: US (occurrence: US)
  Receive Date: 20131010
  Receipt Date: 20131010
  Transmission Date: 20140711
  Serious: No
  Sender: FDA-Public Use
  Company Number: US-ALLERGAN-1218400US

PATIENT
  Age: 40 Year
  Sex: Female

DRUGS (5)
  1. VANIQA [Suspect]
     Indication: HAIR GROWTH ABNORMAL
     Dosage: APPLIED ON THE CHIN
     Route: 061
     Dates: start: 201201, end: 20120919
  2. CETAPHIL CLEANSER [Concomitant]
     Indication: THERAPEUTIC SKIN CARE TOPICAL
     Dosage: DF
  3. MULTIVITAMINS [Concomitant]
     Dosage: DF
  4. FIBER [Concomitant]
     Dosage: DF
  5. A MOISTURIZER [Concomitant]
     Indication: THERAPEUTIC SKIN CARE TOPICAL
     Dosage: DF

REACTIONS (2)
  - Drug ineffective [Not Recovered/Not Resolved]
  - Product quality issue [Unknown]
